FAERS Safety Report 23375777 (Version 2)
Quarter: 2024Q1

REPORT INFORMATION
  Report Type: Spontaneous
  Country: US (occurrence: US)
  Receive Date: 20240107
  Receipt Date: 20240211
  Transmission Date: 20240410
  Serious: No
  Sender: FDA-Public Use
  Company Number: US-JNJFOC-20240103302

PATIENT
  Sex: Male

DRUGS (2)
  1. CONCERTA [Suspect]
     Active Substance: METHYLPHENIDATE HYDROCHLORIDE
     Indication: Attention deficit hyperactivity disorder
     Dosage: VARYING DOSE OF 18 AND 54 MG
     Route: 048
     Dates: start: 20080707, end: 20110328
  2. CONCERTA [Suspect]
     Active Substance: METHYLPHENIDATE HYDROCHLORIDE
     Indication: Oppositional defiant disorder

REACTIONS (4)
  - Decreased appetite [Unknown]
  - Headache [Unknown]
  - Drug ineffective [Unknown]
  - Product dose omission issue [Unknown]
